FAERS Safety Report 4386708-5 (Version None)
Quarter: 2004Q2

REPORT INFORMATION
  Report Type: 
  Country: None (occurrence: None)
  Receive Date: 20040607
  Receipt Date: 20030617
  Transmission Date: 20050107
  Serious: Yes (Other)
  Sender: FDA-Public Use
  Company Number: 322311

PATIENT
  Age: 56 Year
  Sex: Female
  Weight: 59 kg

DRUGS (6)
  1. ACCUTANE [Suspect]
     Indication: SEBACEOUS HYPERPLASIA
     Dosage: 10 MG 1 PER 2 DAY ORAL
     Route: 048
     Dates: start: 20000614, end: 20020913
  2. DEPAKOTE [Suspect]
     Indication: MIGRAINE
     Dosage: 250 MG 2 PER DAY ORAL
     Route: 048
     Dates: start: 20000110, end: 20020913
  3. DEPAKOTE [Suspect]
     Indication: PROPHYLAXIS
     Dosage: 250 MG 2 PER DAY ORAL
     Route: 048
     Dates: start: 20000110, end: 20020913
  4. TEGRETOL [Concomitant]
  5. PREMPRO (ESTROGENS, CONJUGATED/MEDROXYPROGESTERONE ACETATE) [Concomitant]
  6. MAXALT [Concomitant]

REACTIONS (1)
  - DEAFNESS NEUROSENSORY [None]
